FAERS Safety Report 5265212-6 (Version None)
Quarter: 2007Q1

REPORT INFORMATION
  Report Type: 
  Country: None (occurrence: None)
  Receive Date: 20061221
  Receipt Date: 20060814
  Transmission Date: 20070707
  Serious: No
  Sender: FDA-Public Use
  Company Number: TPA2006A01337

PATIENT
  Age: 48 Year
  Sex: Female
  Weight: 44.4525 kg

DRUGS (7)
  1. ROZEREM [Suspect]
     Indication: INSOMNIA
     Dosage: 8 MG, QHS, PER ORAL
     Route: 048
     Dates: start: 20060810
  2. ZOMIG [Concomitant]
  3. IMITREX [Concomitant]
  4. FROVA (FROVATRIPTAN SUCCINATE MONOHYDRATE) [Concomitant]
  5. FURINOL (ACETYLSALICYLIC ACID, CAFFEINE, BUTALBITAL) [Concomitant]
  6. FURICET (CAFFEINE, BUTALBITAL, PARACETAMOL) [Concomitant]
  7. SOMA [Concomitant]

REACTIONS (3)
  - MIGRAINE [None]
  - VISUAL DISTURBANCE [None]
  - WEIGHT DECREASED [None]
